FAERS Safety Report 21492116 (Version 10)
Quarter: 2023Q4

REPORT INFORMATION
  Report Type: Report from Study
  Country: US (occurrence: US)
  Receive Date: 20221021
  Receipt Date: 20231030
  Transmission Date: 20240110
  Serious: Yes (Hospitalization, Other)
  Sender: FDA-Public Use
  Company Number: US-ARGENX-2022-ARGX-US001269

PATIENT

DRUGS (4)
  1. VYVGART [Suspect]
     Active Substance: EFGARTIGIMOD ALFA-FCAB
     Indication: Myasthenia gravis
     Dosage: 10 MG, 1/WEEK
     Route: 042
     Dates: start: 20220708
  2. VYVGART [Suspect]
     Active Substance: EFGARTIGIMOD ALFA-FCAB
     Dosage: 10 MG/KG
     Route: 042
  3. XARELTO [Concomitant]
     Active Substance: RIVAROXABAN
     Indication: Product used for unknown indication
     Dosage: UNK
  4. BENADRYL [Concomitant]
     Active Substance: DIPHENHYDRAMINE HYDROCHLORIDE
     Indication: Product used for unknown indication
     Dosage: UNK

REACTIONS (17)
  - Hospitalisation [Unknown]
  - Antiphospholipid syndrome [Unknown]
  - Inappropriate schedule of product administration [Unknown]
  - Dysphonia [Unknown]
  - Dyspnoea exertional [Recovering/Resolving]
  - Muscular weakness [Unknown]
  - Diplopia [Recovering/Resolving]
  - Eyelid ptosis [Unknown]
  - Anxiety [Unknown]
  - Product use in unapproved indication [Unknown]
  - Malaise [Unknown]
  - White blood cell count increased [Unknown]
  - Facial paresis [Unknown]
  - Fatigue [Recovering/Resolving]
  - Infection [Unknown]
  - Ligament sprain [Unknown]
  - Muscular weakness [Unknown]

NARRATIVE: CASE EVENT DATE: 20220714
